FAERS Safety Report 7268766-3 (Version None)
Quarter: 2011Q1

REPORT INFORMATION
  Report Type: 
  Country: None (occurrence: None)
  Receive Date: 20110201
  Receipt Date: 20110120
  Transmission Date: 20110831
  Serious: Yes (Hospitalization)
  Sender: FDA-Public Use
  Company Number: PHHY2011JP05113

PATIENT
  Age: 74 Year
  Sex: Male

DRUGS (6)
  1. ANTIBIOTICS [Concomitant]
     Dosage: UNK
     Dates: start: 20100724
  2. RINDERON -DP [Concomitant]
     Dosage: UNK
     Dates: start: 20100724
  3. ATARAX [Concomitant]
     Dosage: UNK
     Route: 048
     Dates: start: 20100724
  4. DIOVAN [Suspect]
     Dosage: 80 MG, QD
     Route: 048
     Dates: start: 20101018, end: 20101111
  5. DIOVAN [Suspect]
     Indication: HYPERTENSION
     Dosage: 80 MG, QD
     Route: 048
     Dates: start: 20030821, end: 20100831
  6. BARAMYCIN [Concomitant]
     Dosage: UNK
     Dates: start: 20100724

REACTIONS (3)
  - PEMPHIGOID [None]
  - ERYTHEMA [None]
  - BLISTER [None]
